FAERS Safety Report 10678135 (Version 1)
Quarter: 2014Q4

REPORT INFORMATION
  Report Type: Spontaneous
  Country: FR (occurrence: None)
  Receive Date: 20141223
  Receipt Date: 20141223
  Transmission Date: 20150529
  Serious: Yes (Other)
  Sender: FDA-Public Use
  Company Number: 2014HINLIT1080

PATIENT
  Age: 23 Year
  Sex: Male

DRUGS (6)
  1. DDL (DIDANOSINE) [Concomitant]
  2. RPV (RILPIVIRINE) [Concomitant]
  3. DTG (DOLUTEGRAVIR) [Concomitant]
  4. FOSCARNET [Suspect]
     Active Substance: FOSCARNET
     Indication: HIV INFECTION
     Route: 042
  5. ZIDOVUDINE. [Suspect]
     Active Substance: ZIDOVUDINE
     Indication: HIV INFECTION
     Route: 048
     Dates: start: 1992
  6. ABC (ABACAVIR) [Concomitant]

REACTIONS (2)
  - Nephropathy toxic [None]
  - Pyrexia [None]
